FAERS Safety Report 14202989 (Version 1)
Quarter: 2017Q4

REPORT INFORMATION
  Report Type: Spontaneous
  Country: FR (occurrence: FR)
  Receive Date: 20171119
  Receipt Date: 20171119
  Transmission Date: 20180321
  Serious: Yes (Other)
  Sender: FDA-Public Use
  Company Number: FR-MERCK KGAA-2034602

PATIENT
  Age: 78 Year
  Sex: Female
  Weight: 52 kg

DRUGS (3)
  1. NOVOTHYROX [Suspect]
     Active Substance: LEVOTHYROXINE SODIUM
     Indication: POST PROCEDURAL HYPOTHYROIDISM
  2. NOVOTHYROX [Suspect]
     Active Substance: LEVOTHYROXINE SODIUM
  3. NOVOTHYROX [Suspect]
     Active Substance: LEVOTHYROXINE SODIUM

REACTIONS (15)
  - Arrhythmia [None]
  - Blood pressure abnormal [None]
  - Hyperthyroidism [None]
  - Fatigue [None]
  - Tinnitus [None]
  - Blood thyroid stimulating hormone abnormal [Recovered/Resolved]
  - Fall [None]
  - Insomnia [Not Recovered/Not Resolved]
  - Headache [None]
  - Neuralgia [None]
  - Tremor [None]
  - Aphasia [None]
  - Balance disorder [None]
  - Weight decreased [None]
  - Palpitations [None]

NARRATIVE: CASE EVENT DATE: 2017
